FAERS Safety Report 7893213-8 (Version None)
Quarter: 2011Q4

REPORT INFORMATION
  Report Type: 
  Country: None (occurrence: None)
  Receive Date: 20111104
  Receipt Date: 20111028
  Transmission Date: 20120403
  Serious: Yes (Hospitalization, Other)
  Sender: FDA-Public Use
  Company Number: PHEH2010US02394

PATIENT
  Sex: Male
  Weight: 83.9 kg

DRUGS (32)
  1. ASPIRIN [Concomitant]
     Dosage: 324 MG, DAILY
     Route: 048
  2. CARVEDILOL [Concomitant]
     Indication: CARDIAC FAILURE CONGESTIVE
     Dosage: 6.25 MG, BID
     Route: 048
  3. RED BLOOD CELLS [Concomitant]
     Dosage: 1 UNIT
  4. RED BLOOD CELLS [Concomitant]
     Dosage: 1-2 UNITS WEEKLY
  5. RED BLOOD CELLS [Concomitant]
     Dosage: 1 UNIT
     Dates: start: 20100106
  6. EXJADE [Suspect]
     Indication: MYELODYSPLASTIC SYNDROME
     Dosage: 500 MG, QD
     Route: 048
     Dates: start: 20090226, end: 20100106
  7. CARVEDILOL [Concomitant]
     Dosage: 6.25 MG, QD
     Route: 048
  8. SIMVASTATIN [Concomitant]
     Indication: BLOOD CHOLESTEROL INCREASED
     Dosage: 10 MG, DAILY
     Route: 048
  9. FUROSEMIDE [Concomitant]
     Dosage: 40 MG, QD
     Route: 048
  10. SIMETHICONE [Concomitant]
     Dosage: 20 MG, TID PC AND HS
     Route: 048
  11. FUROSEMIDE [Concomitant]
     Indication: CARDIAC FAILURE CHRONIC
     Dosage: 60 MG, BID
     Route: 048
  12. PLATELETS [Concomitant]
     Dosage: 1 UNIT
     Dates: start: 20100108
  13. RED BLOOD CELLS [Concomitant]
     Dosage: 1 UNIT
     Dates: start: 20100120
  14. RED BLOOD CELLS [Concomitant]
     Dosage: 1 UNIT
     Dates: start: 20100406
  15. FOLIC ACID [Concomitant]
     Dosage: 1 MG, QD
     Dates: start: 20100105
  16. RED BLOOD CELLS [Concomitant]
     Dosage: 1 UNIT
     Dates: start: 20100126
  17. RED BLOOD CELLS [Concomitant]
     Dosage: 1 UNIT
  18. RED BLOOD CELLS [Concomitant]
     Dosage: 1 UNIT
     Dates: start: 20100225
  19. RED BLOOD CELLS [Concomitant]
     Dosage: 1 UNIT
     Dates: start: 20100323
  20. ALLOPURINOL [Concomitant]
     Indication: BLOOD URIC ACID INCREASED
     Dosage: 100 MG, DAILY
     Route: 048
  21. RED BLOOD CELLS [Concomitant]
     Dosage: 1 UNIT
     Dates: start: 20100114
  22. RED BLOOD CELLS [Concomitant]
     Dosage: 1 UNIT
     Dates: start: 20100309
  23. RED BLOOD CELLS [Concomitant]
     Dosage: 1 UNIT
     Dates: start: 20100316
  24. RED BLOOD CELLS [Concomitant]
     Dosage: 1 UNIT
     Dates: start: 20100330
  25. RED BLOOD CELLS [Concomitant]
     Dosage: 1 UNIT
     Dates: start: 20100420
  26. PLATELETS [Concomitant]
     Dosage: 1 UNIT
     Dates: start: 20100421
  27. RED BLOOD CELLS [Concomitant]
     Dosage: 1 UNIT
     Dates: start: 20100304
  28. LISINOPRIL [Concomitant]
     Dosage: 2.5 MG, DAILY
     Route: 048
  29. TAMSULOSIN HCL [Concomitant]
     Indication: BENIGN PROSTATIC HYPERPLASIA
     Dosage: 0.4 MG, DAILY
     Route: 048
  30. PLATELETS [Concomitant]
     Dosage: 1 UNIT
     Dates: start: 20100121
  31. RED BLOOD CELLS [Concomitant]
     Dosage: 1 UNIT
     Dates: start: 20100211
  32. RED BLOOD CELLS [Concomitant]
     Dosage: 1 UNIT
     Dates: start: 20100413

REACTIONS (28)
  - ANAEMIA [None]
  - BLOOD CREATININE INCREASED [None]
  - AORTIC STENOSIS [None]
  - SLEEP APNOEA SYNDROME [None]
  - ABDOMINAL DISCOMFORT [None]
  - OEDEMA PERIPHERAL [None]
  - HAEMATOCRIT DECREASED [None]
  - HAEMOGLOBIN DECREASED [None]
  - WEIGHT INCREASED [None]
  - DRUG INEFFECTIVE [None]
  - CARDIAC FAILURE CONGESTIVE [None]
  - HEART RATE IRREGULAR [None]
  - PALLOR [None]
  - CARDIOTOXICITY [None]
  - SCIATICA [None]
  - ARTERIOSCLEROSIS [None]
  - ISCHAEMIA [None]
  - GLOMERULAR FILTRATION RATE DECREASED [None]
  - DYSPNOEA EXERTIONAL [None]
  - ATRIAL FIBRILLATION [None]
  - BENIGN PROSTATIC HYPERPLASIA [None]
  - CARDIAC MURMUR [None]
  - CONJUNCTIVITIS [None]
  - BLOOD UREA INCREASED [None]
  - URINARY INCONTINENCE [None]
  - RENAL IMPAIRMENT [None]
  - PLATELET COUNT DECREASED [None]
  - ALANINE AMINOTRANSFERASE INCREASED [None]
